FAERS Safety Report 15391820 (Version 1)
Quarter: 2018Q3

REPORT INFORMATION
  Report Type: Spontaneous
  Country: US (occurrence: US)
  Receive Date: 20180910
  Receipt Date: 20180910
  Transmission Date: 20181010
  Serious: No
  Sender: FDA-Public Use
  Company Number: None

PATIENT
  Age: 72 Year
  Sex: Female

DRUGS (18)
  1. PROBIOTIC [Concomitant]
     Active Substance: PROBIOTICS NOS
  2. UNDECYLENIC [Concomitant]
  3. MAG OXIDE [Concomitant]
     Active Substance: MAGNESIUM OXIDE
  4. TURMERIC [Concomitant]
     Active Substance: HERBALS\TURMERIC
  5. FLONASE ALGY SPR [Concomitant]
  6. VITAMIN B12 [Concomitant]
     Active Substance: CYANOCOBALAMIN
  7. VITAMIN D3 [Concomitant]
     Active Substance: CHOLECALCIFEROL
  8. OMPRAZOLE [Concomitant]
     Active Substance: OMEPRAZOLE
  9. VITAMIN B COMPLEX [Concomitant]
     Active Substance: CYANOCOBALAMIN\DEXPANTHENOL\NIACINAMIDE\PYRIDOXINE HYDROCHLORIDE\RIBOFLAVIN 5^-PHOSPHATE SODIUM\THIAMINE HYDROCHLORIDE\VITAMIN B COMPLEX
  10. GLUCOSAMINE [Concomitant]
     Active Substance: GLUCOSAMINE
  11. MONTELUKAST [Concomitant]
     Active Substance: MONTELUKAST SODIUM
  12. VITAMIN E [Concomitant]
     Active Substance: .ALPHA.-TOCOPHEROL
  13. CELEBREX [Concomitant]
     Active Substance: CELECOXIB
  14. METAMUCIL [Concomitant]
     Active Substance: PLANTAGO SEED
  15. XOLAIR [Suspect]
     Active Substance: OMALIZUMAB
     Dates: start: 20180731
  16. CALCIUM CARB [Concomitant]
     Active Substance: CALCIUM CARBONATE
  17. SYMBICORT [Concomitant]
     Active Substance: BUDESONIDE\FORMOTEROL FUMARATE DIHYDRATE
  18. SYNTHROID [Concomitant]
     Active Substance: LEVOTHYROXINE SODIUM

REACTIONS (1)
  - Surgery [None]
